FAERS Safety Report 14228976 (Version 1)
Quarter: 2017Q4

REPORT INFORMATION
  Report Type: Spontaneous
  Country: US (occurrence: None)
  Receive Date: 20171124
  Receipt Date: 20171124
  Transmission Date: 20180321
  Serious: No
  Sender: FDA-Public Use
  Company Number: None

PATIENT
  Sex: Female

DRUGS (1)
  1. IBRANCE [Suspect]
     Active Substance: PALBOCICLIB
     Indication: METASTASES TO BONE
     Dosage: 125 MG  DAILY FOR 21 DAYS OF A 28 DAY CYCLE PO
     Route: 048
     Dates: start: 20170727

REACTIONS (1)
  - Haemorrhoidal haemorrhage [None]
